FAERS Safety Report 24810091 (Version 1)
Quarter: 2025Q1

REPORT INFORMATION
  Report Type: Spontaneous
  Country: US (occurrence: US)
  Receive Date: 20250106
  Receipt Date: 20250106
  Transmission Date: 20250409
  Serious: Yes (Other)
  Sender: BAYER HEALTHCARE LLC
  Company Number: US-BAYER-2025A000929

PATIENT
  Age: 76 Year
  Sex: Male

DRUGS (6)
  1. ALKA-SELTZER GOLD [Suspect]
     Active Substance: ANHYDROUS CITRIC ACID\POTASSIUM BICARBONATE\SODIUM BICARBONATE
     Indication: Food allergy
     Route: 048
     Dates: start: 1978
  2. ALKA-SELTZER GOLD [Suspect]
     Active Substance: ANHYDROUS CITRIC ACID\POTASSIUM BICARBONATE\SODIUM BICARBONATE
     Indication: Hypersensitivity
  3. ALKA-SELTZER GOLD [Suspect]
     Active Substance: ANHYDROUS CITRIC ACID\POTASSIUM BICARBONATE\SODIUM BICARBONATE
     Indication: Nasopharyngitis
  4. XOLAIR [Concomitant]
     Active Substance: OMALIZUMAB
  5. EPINEPHRINE [Concomitant]
     Active Substance: EPINEPHRINE
     Indication: Hypersensitivity
     Dates: start: 1980
  6. EPINEPHRINE [Concomitant]
     Active Substance: EPINEPHRINE
     Indication: Nasopharyngitis

REACTIONS (3)
  - Drug dependence [None]
  - Product prescribing issue [None]
  - Drug effective for unapproved indication [None]

NARRATIVE: CASE EVENT DATE: 19780101
